FAERS Safety Report 9342419 (Version 1)
Quarter: 2013Q2

REPORT INFORMATION
  Report Type: Spontaneous
  Country: US (occurrence: US)
  Receive Date: 20130611
  Receipt Date: 20130611
  Transmission Date: 20140414
  Serious: No
  Sender: FDA-Public Use
  Company Number: US-009507513-1306USA001740

PATIENT
  Age: 23 Year
  Sex: Female
  Weight: 80.73 kg

DRUGS (3)
  1. IMPLANON [Suspect]
     Indication: CONTRACEPTION
     Dosage: 1 ROD UP TO 3 YEARS
     Route: 059
     Dates: start: 20120329
  2. SUDAFED [Concomitant]
  3. DELSYM [Concomitant]

REACTIONS (4)
  - Bronchitis [Unknown]
  - Hypomenorrhoea [Unknown]
  - Metrorrhagia [Unknown]
  - Amenorrhoea [Unknown]
